FAERS Safety Report 8009828-2 (Version None)
Quarter: 2011Q4

REPORT INFORMATION
  Report Type: 
  Country: None (occurrence: None)
  Receive Date: 20111228
  Receipt Date: 20111216
  Transmission Date: 20120403
  Serious: Yes (Other)
  Sender: FDA-Public Use
  Company Number: US-BAYER-2011-121557

PATIENT
  Sex: Female

DRUGS (2)
  1. MIRENA [Suspect]
     Indication: CONTRACEPTION
     Dosage: 20 MCG/24HR, CONT
     Route: 015
     Dates: start: 20101001
  2. MIRENA [Suspect]
     Indication: MENORRHAGIA

REACTIONS (5)
  - VULVOVAGINAL PAIN [None]
  - DEVICE DISLOCATION [None]
  - UTERINE LEIOMYOMA [None]
  - ABDOMINAL PAIN [None]
  - OVARIAN CYST [None]
